FAERS Safety Report 10916066 (Version 3)
Quarter: 2016Q1

REPORT INFORMATION
  Report Type: Not Available
  Country: FR (occurrence: FR)
  Receive Date: 20150316
  Receipt Date: 20160311
  Transmission Date: 20160525
  Serious: Yes (Hospitalization)
  Sender: FDA-Public Use
  Company Number: FR-BEH-2015049509

PATIENT
  Age: 64 Year
  Sex: Female

DRUGS (6)
  1. LEVACT [Suspect]
     Active Substance: BENDAMUSTINE HYDROCHLORIDE
     Indication: STEM CELL TRANSPLANT
     Route: 042
     Dates: start: 20141024, end: 20141025
  2. ALKERAN [Suspect]
     Active Substance: MELPHALAN
     Indication: STEM CELL TRANSPLANT
     Route: 042
     Dates: start: 20141029, end: 20141029
  3. CYTARABINE. [Suspect]
     Active Substance: CYTARABINE
     Indication: STEM CELL TRANSPLANT
     Route: 042
     Dates: start: 20141025, end: 20141028
  4. ETOPOSIDE MYLAN [Suspect]
     Active Substance: ETOPOSIDE
     Indication: STEM CELL TRANSPLANT
     Route: 042
     Dates: start: 20141025, end: 20141028
  5. SOLU-MEDROL [Concomitant]
     Active Substance: METHYLPREDNISOLONE SODIUM SUCCINATE
  6. PRIVIGEN [Suspect]
     Active Substance: HUMAN IMMUNOGLOBULIN G
     Indication: STEM CELL TRANSPLANT
     Route: 042
     Dates: start: 20141030, end: 20141030

REACTIONS (1)
  - Acute kidney injury [Not Recovered/Not Resolved]

NARRATIVE: CASE EVENT DATE: 20141027
